FAERS Safety Report 11588038 (Version 2)
Quarter: 2015Q4

REPORT INFORMATION
  Report Type: Spontaneous
  Country: IT (occurrence: IT)
  Receive Date: 20151002
  Receipt Date: 20151012
  Transmission Date: 20160304
  Serious: Yes (Hospitalization)
  Sender: FDA-Public Use
  Company Number: IT-ROCHE-1640653

PATIENT
  Age: 61 Year
  Sex: Female

DRUGS (9)
  1. RIVOTRIL [Suspect]
     Active Substance: CLONAZEPAM
     Indication: PRODUCT USED FOR UNKNOWN INDICATION
     Dosage: 2.5 MG/ML ORAL DROPS, SOLUTION 10 ML BOTTLE
     Route: 048
     Dates: start: 20110826, end: 20150831
  2. CARDIOASPIRIN [Concomitant]
     Active Substance: ASPIRIN
     Dosage: 100 MG GASTRO-RESISTANT TABLETS 30 TABLETS
     Route: 048
  3. LANTUS [Concomitant]
     Active Substance: INSULIN GLARGINE
     Indication: TYPE 2 DIABETES MELLITUS
     Dosage: DOSE: 10 INTERNATIONAL UNITS (LESS THAN 100)
     Route: 058
  4. CARBOLITHIUM [Interacting]
     Active Substance: LITHIUM CARBONATE
     Indication: BIPOLAR DISORDER
     Dosage: 150 MG HARD CAPSULES 50 CAPSULES
     Route: 046
     Dates: start: 20110826, end: 20150831
  5. RAMIPRIL. [Concomitant]
     Active Substance: RAMIPRIL
     Indication: HYPERTENSION
     Route: 048
  6. HUMALOG [Concomitant]
     Active Substance: INSULIN LISPRO
     Indication: TYPE 2 DIABETES MELLITUS
     Dosage: DOSE: 36 INTERNATIONAL UNITS (LESS THAN 100)
     Route: 058
  7. DEPAKIN [Interacting]
     Active Substance: VALPROATE SODIUM
     Indication: BIPOLAR DISORDER
     Dosage: 500MG X 40 TABLETS; PERIOD: 3 YEARS
     Route: 048
  8. MEPRAL [Concomitant]
     Active Substance: OMEPRAZOLE SODIUM
     Dosage: 20 GASTRO-RESISTANT HARD CAPSULES 14 CAPSULES
     Route: 048
  9. SEROQUEL [Concomitant]
     Active Substance: QUETIAPINE FUMARATE
     Indication: BIPOLAR DISORDER
     Dosage: 25 MG X 6 TABLETS; PERIOD: 3 YEARS
     Route: 048

REACTIONS (2)
  - Drug interaction [Unknown]
  - Toxicity to various agents [Recovered/Resolved]

NARRATIVE: CASE EVENT DATE: 20150830
